FAERS Safety Report 25135747 (Version 1)
Quarter: 2025Q1

REPORT INFORMATION
  Report Type: Spontaneous
  Country: CZ (occurrence: CZ)
  Receive Date: 20250328
  Receipt Date: 20250328
  Transmission Date: 20250409
  Serious: Yes (Other)
  Sender: PFIZER
  Company Number: CZ-TAKEDA-2025TUS028959

PATIENT
  Sex: Male

DRUGS (1)
  1. ADCETRIS [Suspect]
     Active Substance: BRENTUXIMAB VEDOTIN
     Indication: Hodgkin^s disease recurrent
     Route: 065
     Dates: start: 20250102

REACTIONS (8)
  - Infusion related reaction [Unknown]
  - Hypersensitivity [Unknown]
  - Infusion site extravasation [Unknown]
  - Hypotension [Unknown]
  - Tachycardia [Unknown]
  - Urticaria [Unknown]
  - Oxygen saturation decreased [Unknown]
  - Circulatory collapse [Unknown]

NARRATIVE: CASE EVENT DATE: 20250130
